FAERS Safety Report 19350681 (Version 3)
Quarter: 2021Q3

REPORT INFORMATION
  Report Type: Report from Study
  Country: GB (occurrence: GB)
  Receive Date: 20210531
  Receipt Date: 20210701
  Transmission Date: 20211014
  Serious: Yes (Hospitalization)
  Sender: FDA-Public Use
  Company Number: GB-ROCHE-2837132

PATIENT
  Age: 64 Year
  Sex: Female

DRUGS (3)
  1. ZANUBRUTINIB [Suspect]
     Active Substance: ZANUBRUTINIB
     Indication: FOLLICULAR LYMPHOMA
     Dosage: LAST DOSE PRIOR TO SAE ON 14/MAY/2021.
     Route: 048
     Dates: start: 20201201
  2. FLUCLOXACILLIN [Concomitant]
     Active Substance: FLUCLOXACILLIN
     Indication: NAIL INFECTION
     Route: 048
  3. OBINUTUZUMAB. [Suspect]
     Active Substance: OBINUTUZUMAB
     Indication: FOLLICULAR LYMPHOMA
     Dosage: LAST DOSE PRIOR TO SAE WAS ON 20/APR/2021
     Route: 042
     Dates: start: 20201201

REACTIONS (1)
  - Nail infection [Recovered/Resolved]

NARRATIVE: CASE EVENT DATE: 20210520
